FAERS Safety Report 9630055 (Version 1)
Quarter: 2013Q4

REPORT INFORMATION
  Report Type: Spontaneous
  Country: NL (occurrence: NL)
  Receive Date: 20131017
  Receipt Date: 20131017
  Transmission Date: 20140711
  Serious: Yes (Hospitalization)
  Sender: FDA-Public Use
  Company Number: NL-TEVA-437941ISR

PATIENT
  Age: 74 Year
  Sex: Female

DRUGS (4)
  1. PREDNISONE [Suspect]
     Indication: NECROTISING SCLERITIS
     Dosage: 1 MG/KG DAILY;
     Route: 048
     Dates: start: 2010
  2. METHOTREXATE [Suspect]
     Indication: NECROTISING SCLERITIS
     Dosage: 20 MG/WEEK
     Route: 048
     Dates: start: 2010
  3. ADALIMUMAB [Suspect]
     Indication: NECROTISING SCLERITIS
     Dosage: 40 MG/WEEK
     Route: 058
     Dates: start: 201104
  4. TACROLIMUS [Concomitant]
     Indication: NECROTISING SCLERITIS
     Route: 047

REACTIONS (2)
  - Histoplasmosis disseminated [Recovering/Resolving]
  - Cholestasis [Recovering/Resolving]
